FAERS Safety Report 10069735 (Version 1)
Quarter: 2014Q2

REPORT INFORMATION
  Report Type: Spontaneous
  Country: CA (occurrence: CA)
  Receive Date: 20140410
  Receipt Date: 20140410
  Transmission Date: 20141212
  Serious: Yes (Hospitalization)
  Sender: FDA-Public Use
  Company Number: CA-ROCHE-1380310

PATIENT
  Age: 70 Year
  Sex: Female

DRUGS (19)
  1. HERCEPTIN [Suspect]
     Indication: PRODUCT USED FOR UNKNOWN INDICATION
     Route: 042
  2. DOCETAXEL [Suspect]
     Indication: PRODUCT USED FOR UNKNOWN INDICATION
     Dosage: THERAPY DURATION: 36 DAYS
     Route: 042
  3. DOCETAXEL [Suspect]
     Route: 042
  4. ACYCLOVIR [Concomitant]
     Route: 065
  5. AMILORIDE HYDROCHLORIDE [Concomitant]
     Route: 065
  6. CEFPROZIL [Concomitant]
     Route: 065
  7. COLACE [Concomitant]
     Route: 065
  8. CRESTOR [Concomitant]
     Route: 065
  9. DEXAMETHASONE [Concomitant]
     Route: 065
  10. MICRO-K EXTENCAPS [Concomitant]
     Route: 065
  11. MORPHINE [Concomitant]
     Route: 065
  12. NYSTATIN [Concomitant]
     Route: 065
  13. ONDANSETRON [Concomitant]
     Route: 065
  14. PRAMOCAINE [Concomitant]
  15. SENNA [Concomitant]
     Route: 065
  16. SPIRONOLACTONE [Concomitant]
     Route: 065
  17. STEMETIL [Concomitant]
     Route: 065
  18. TUMS [Concomitant]
     Route: 065
  19. TYLENOL [Concomitant]
     Route: 065

REACTIONS (4)
  - Arthralgia [Recovered/Resolved]
  - Bone pain [Recovered/Resolved]
  - Neutropenic sepsis [Recovered/Resolved]
  - Oral pain [Recovered/Resolved]
